FAERS Safety Report 11412374 (Version 1)
Quarter: 2015Q3

REPORT INFORMATION
  Report Type: Spontaneous
  Country: US (occurrence: US)
  Receive Date: 20150824
  Receipt Date: 20150824
  Transmission Date: 20151125
  Serious: No
  Sender: FDA-Public Use
  Company Number: US-JNJFOC-20150709938

PATIENT
  Age: 69 Year
  Sex: Female
  Weight: 49.9 kg

DRUGS (3)
  1. WOMENS ROGAINE [Suspect]
     Active Substance: MINOXIDIL
     Indication: ALOPECIA
     Dosage: 1 1/2 ML
     Route: 061
     Dates: start: 20150712
  2. WOMENS ROGAINE [Suspect]
     Active Substance: MINOXIDIL
     Indication: ALOPECIA
     Route: 061
  3. MULTIVITAMINS [Concomitant]
     Active Substance: VITAMINS
     Indication: ROUTINE HEALTH MAINTENANCE
     Route: 065

REACTIONS (5)
  - Peripheral swelling [Not Recovered/Not Resolved]
  - Fluid retention [Not Recovered/Not Resolved]
  - Incorrect dose administered [Unknown]
  - Drug administered at inappropriate site [Unknown]
  - Diarrhoea [Not Recovered/Not Resolved]
